FAERS Safety Report 12188570 (Version 2)
Quarter: 2016Q2

REPORT INFORMATION
  Report Type: Spontaneous
  Country: FR (occurrence: FR)
  Receive Date: 20160317
  Receipt Date: 20160627
  Transmission Date: 20160815
  Serious: Yes (Death, Other)
  Sender: FDA-Public Use
  Company Number: FR-ALEXION PHARMACEUTICALS INC-A201601750

PATIENT
  Sex: Female
  Weight: 10 kg

DRUGS (5)
  1. PENICILLIN V                       /00001801/ [Concomitant]
     Active Substance: PENICILLIN V
     Indication: ANTIBIOTIC PROPHYLAXIS
     Route: 065
  2. SOLIRIS [Suspect]
     Active Substance: ECULIZUMAB
     Indication: HAEMOLYTIC URAEMIC SYNDROME
     Dosage: 600 MG, UNK
     Route: 042
     Dates: start: 20160303
  3. DOBUTAMINE [Concomitant]
     Active Substance: DOBUTAMINE\DOBUTAMINE HYDROCHLORIDE
     Indication: CARDIAC DISORDER
     Dosage: 10 ?G/KG/MIN
     Route: 042
     Dates: start: 20160303, end: 20160304
  4. MILRINONE [Concomitant]
     Active Substance: MILRINONE
     Indication: CARDIAC DISORDER
     Dosage: 0.8 ?G/KG/MIN
     Route: 042
     Dates: start: 20160303, end: 20160304
  5. FUROSEMIDE. [Concomitant]
     Active Substance: FUROSEMIDE
     Indication: ANURIA
     Dosage: 10 MG X6
     Route: 065
     Dates: start: 20160303, end: 20160304

REACTIONS (5)
  - Thrombotic microangiopathy [Fatal]
  - Haemolytic uraemic syndrome [Fatal]
  - Brain death [Fatal]
  - Nervous system disorder [Fatal]
  - Multiple organ dysfunction syndrome [Fatal]
